FAERS Safety Report 8091145-6 (Version None)
Quarter: 2012Q1

REPORT INFORMATION
  Report Type: 
  Country: None (occurrence: None)
  Receive Date: 20120129
  Receipt Date: 20110920
  Transmission Date: 20120608
  Serious: No
  Sender: FDA-Public Use
  Company Number: US-ABBOTT-11P-163-0856460-00

PATIENT
  Age: 54 Year
  Sex: Male

DRUGS (5)
  1. HUMIRA [Suspect]
     Indication: PSORIASIS
     Dates: start: 20090401
  2. DIOVAN HCT [Concomitant]
     Indication: BLOOD PRESSURE
     Dosage: 160/12.5MG DAILY
     Route: 048
  3. ACTOS [Concomitant]
     Indication: DIABETES MELLITUS
     Route: 048
  4. TRICOR [Concomitant]
     Indication: BLOOD CHOLESTEROL
     Route: 048
  5. METFORMIN COMBINATION [Concomitant]
     Indication: DIABETES MELLITUS
     Dosage: 2.5/500 THREE TIMES A DAY
     Route: 048

REACTIONS (7)
  - BACK PAIN [None]
  - RETCHING [None]
  - INFLUENZA [None]
  - SWELLING [None]
  - PYREXIA [None]
  - ABDOMINAL PAIN UPPER [None]
  - VOMITING [None]
